FAERS Safety Report 26020249 (Version 1)
Quarter: 2025Q4

REPORT INFORMATION
  Report Type: Spontaneous
  Country: EU (occurrence: EU)
  Receive Date: 20251110
  Receipt Date: 20251110
  Transmission Date: 20260118
  Serious: Yes (Life-Threatening, Hospitalization, Congenital Anomaly)
  Sender: TEVA
  Company Number: EU-EMB-M202402280-1

PATIENT
  Sex: Female

DRUGS (4)
  1. AMOXICILLIN\CLAVULANIC ACID [Suspect]
     Active Substance: AMOXICILLIN\CLAVULANIC ACID
     Indication: Sinusitis
     Dosage: 875MG/125 MG
     Route: 064
     Dates: start: 202401, end: 202401
  2. FIASP [Concomitant]
     Active Substance: INSULIN ASPART
     Indication: Type 1 diabetes mellitus
     Dosage: TIME INTERVAL: AS NECESSARY
     Route: 064
     Dates: start: 202311, end: 202408
  3. LEVEMIR [Concomitant]
     Active Substance: INSULIN DETEMIR
     Indication: Type 1 diabetes mellitus
     Dosage: TIME INTERVAL: AS NECESSARY: 2X/D AS NECESSARY
     Route: 064
     Dates: start: 202311, end: 202408
  4. KESIMPTA [Suspect]
     Active Substance: OFATUMUMAB
     Indication: Multiple sclerosis
     Dosage: LAST APPLICATION IN GW 6
     Route: 064
     Dates: start: 202311, end: 202401

REACTIONS (3)
  - Congenital diaphragmatic hernia [Recovered/Resolved with Sequelae]
  - Dextrocardia [Not Recovered/Not Resolved]
  - Foetal exposure during pregnancy [Unknown]
